FAERS Safety Report 15845618 (Version 4)
Quarter: 2019Q3

REPORT INFORMATION
  Report Type: Spontaneous
  Country: CN (occurrence: CN)
  Receive Date: 20190119
  Receipt Date: 20190801
  Transmission Date: 20191004
  Serious: Yes (Hospitalization, Other)
  Sender: FDA-Public Use
  Company Number: CN-STRIDES ARCOLAB LIMITED-2019SP000646

PATIENT
  Age: 71 Year
  Sex: Female

DRUGS (6)
  1. CEFTAZIDIME. [Concomitant]
     Active Substance: CEFTAZIDIME
     Dosage: 1 G, QD
     Route: 033
     Dates: start: 2013, end: 2013
  2. VANCOMYCIN [Suspect]
     Active Substance: VANCOMYCIN
     Indication: PERITONITIS
     Dosage: 500 MG ONCE IN THREE DAYS
     Route: 033
     Dates: start: 2013, end: 2013
  3. VANCOMYCIN [Suspect]
     Active Substance: VANCOMYCIN
     Dosage: 500 MG EVERY ALTERANATE DAY
     Route: 033
     Dates: start: 2013, end: 2013
  4. VANCOMYCIN [Suspect]
     Active Substance: VANCOMYCIN
     Dosage: 500 MG EVERY OTHER DAY
     Route: 033
     Dates: start: 2013, end: 2013
  5. LEVOFLOXACIN. [Concomitant]
     Active Substance: LEVOFLOXACIN
     Indication: PERITONITIS
     Dosage: 200 MG, QD
     Route: 065
     Dates: start: 2013, end: 2013
  6. CEFTAZIDIME. [Concomitant]
     Active Substance: CEFTAZIDIME
     Indication: PERITONITIS
     Dosage: 1 G, QD
     Route: 065
     Dates: start: 2013, end: 2013

REACTIONS (1)
  - Noninfectious peritonitis [Recovered/Resolved]

NARRATIVE: CASE EVENT DATE: 201307
